FAERS Safety Report 21404078 (Version 2)
Quarter: 2022Q4

REPORT INFORMATION
  Report Type: Spontaneous
  Country: US (occurrence: US)
  Receive Date: 20221003
  Receipt Date: 20221021
  Transmission Date: 20230113
  Serious: Yes (Other)
  Sender: FDA-Public Use
  Company Number: US-BAYER-2022A133498

PATIENT
  Age: 36 Year
  Sex: Male

DRUGS (3)
  1. KOVALTRY [Suspect]
     Active Substance: ANTIHEMOPHILIC FACTOR, HUMAN RECOMBINANT
     Dosage: 1700 TO 2125 UNITS, ONE TO TWO TIMES WEEKLY
     Route: 042
  2. KOVALTRY [Suspect]
     Active Substance: ANTIHEMOPHILIC FACTOR, HUMAN RECOMBINANT
     Dosage: 4 DF, 3 MINOR AND 1 MAJOR DOSES FOR THE RIGHT KNEE AND LEFT ANKLE BLEED TREATMENT
  3. CELEBREX [Concomitant]
     Active Substance: CELECOXIB

REACTIONS (3)
  - Haemarthrosis [Recovered/Resolved]
  - Haemarthrosis [Recovered/Resolved]
  - Fall [None]

NARRATIVE: CASE EVENT DATE: 20220907
